FAERS Safety Report 10704474 (Version 1)
Quarter: 2015Q1

REPORT INFORMATION
  Report Type: Spontaneous
  Country: US (occurrence: US)
  Receive Date: 20150112
  Receipt Date: 20150112
  Transmission Date: 20150721
  Serious: No
  Sender: FDA-Public Use
  Company Number: US-009507513-1501USA003353

PATIENT
  Sex: Female

DRUGS (1)
  1. DR. SCHOLL^S CLEAR AWAY ONE STEP CLEAR STRIPS [Suspect]
     Active Substance: SALICYLIC ACID
     Indication: PRODUCT USED FOR UNKNOWN INDICATION
     Dosage: UNK, UNKNOWN
     Route: 061

REACTIONS (2)
  - Drug administered at inappropriate site [Unknown]
  - Expired product administered [Unknown]
